FAERS Safety Report 9224492 (Version 1)
Quarter: 2013Q2

REPORT INFORMATION
  Report Type: Spontaneous
  Country: DE (occurrence: DE)
  Receive Date: 20130411
  Receipt Date: 20130411
  Transmission Date: 20140414
  Serious: Yes (Other)
  Sender: FDA-Public Use
  Company Number: DE-MYLANLABS-2013S1007009

PATIENT
  Age: 59 Year
  Sex: Male

DRUGS (1)
  1. FLUOROURACIL [Suspect]
     Indication: RECTAL CANCER
     Dosage: 1000MG/QM/DAY ON DAYS 1-5
     Route: 050

REACTIONS (2)
  - Angina pectoris [Recovering/Resolving]
  - Acute myocardial infarction [Recovering/Resolving]
